FAERS Safety Report 7477663-X (Version None)
Quarter: 2011Q2

REPORT INFORMATION
  Report Type: 
  Country: None (occurrence: None)
  Receive Date: 20110513
  Receipt Date: 20110406
  Transmission Date: 20111010
  Serious: Yes (Hospitalization)
  Sender: FDA-Public Use
  Company Number: US-BAYER-201035793NA

PATIENT
  Age: 33 Year
  Sex: Female
  Weight: 123 kg

DRUGS (6)
  1. YASMIN [Suspect]
     Indication: CONTRACEPTION
     Dosage: PATIENT STATES SHE RECEIVED 3-4 PACKS OF SAMPLES FROM PHYSICIAN AT EACH VISIT.
     Route: 048
     Dates: start: 20040101, end: 20050701
  2. ANTIBIOTICS [Concomitant]
     Dosage: PRN
     Dates: start: 20000101
  3. COUMADIN [Suspect]
     Indication: PULMONARY EMBOLISM
  4. NSAID'S [Concomitant]
     Dosage: PRN
  5. LEVOXYL [Concomitant]
     Indication: HYPOTHYROIDISM
     Dosage: UNK
     Dates: start: 20050701
  6. VALSARTAN  AND HYDROCHLOROTHIAZIDE [Concomitant]
     Indication: HYPERTENSION
     Dosage: UNK
     Dates: start: 20050701

REACTIONS (8)
  - PULMONARY EMBOLISM [None]
  - BACK PAIN [None]
  - CONTUSION [None]
  - EPISTAXIS [None]
  - HEART RATE INCREASED [None]
  - LETHARGY [None]
  - DYSPNOEA [None]
  - BLOOD PRESSURE INCREASED [None]
